FAERS Safety Report 12529509 (Version 1)
Quarter: 2016Q3

REPORT INFORMATION
  Report Type: Spontaneous
  Country: US (occurrence: US)
  Receive Date: 20160706
  Receipt Date: 20160706
  Transmission Date: 20161109
  Serious: Yes (Other)
  Sender: FDA-Public Use
  Company Number: US-AMGEN-USASP2016086039

PATIENT
  Age: 76 Year
  Sex: Female

DRUGS (2)
  1. ENBREL [Suspect]
     Active Substance: ETANERCEPT
     Indication: PSORIATIC ARTHROPATHY
  2. ENBREL [Suspect]
     Active Substance: ETANERCEPT
     Indication: RHEUMATOID ARTHRITIS
     Dosage: 50 MG, QWK
     Route: 065
     Dates: start: 2002

REACTIONS (7)
  - Rheumatoid nodule [Unknown]
  - Diarrhoea [Not Recovered/Not Resolved]
  - Condition aggravated [Unknown]
  - Tendon disorder [Unknown]
  - Dental operation [Unknown]
  - Flatulence [Not Recovered/Not Resolved]
  - Psoriatic arthropathy [Unknown]
